FAERS Safety Report 18283570 (Version 1)
Quarter: 2020Q3

REPORT INFORMATION
  Report Type: Spontaneous
  Country: US (occurrence: US)
  Receive Date: 20200918
  Receipt Date: 20200918
  Transmission Date: 20201103
  Serious: Yes (Other)
  Sender: FDA-Public Use
  Company Number: US-BAUSCH-BL-2020-026206

PATIENT
  Age: 65 Year
  Sex: Female

DRUGS (1)
  1. PEPCID [Suspect]
     Active Substance: FAMOTIDINE
     Indication: ILL-DEFINED DISORDER
     Route: 048

REACTIONS (4)
  - Platelet count decreased [Unknown]
  - Inability to afford medication [Unknown]
  - Therapy interrupted [Unknown]
  - Dyspepsia [Unknown]
